FAERS Safety Report 7540121-8 (Version None)
Quarter: 2011Q2

REPORT INFORMATION
  Report Type: 
  Country: None (occurrence: None)
  Receive Date: 20110610
  Receipt Date: 20110531
  Transmission Date: 20111010
  Serious: Yes (Other)
  Sender: FDA-Public Use
  Company Number: US-BAYER-201027995NA

PATIENT
  Age: 21 Year
  Sex: Female
  Weight: 49.887 kg

DRUGS (3)
  1. YAZ [Suspect]
     Indication: PRODUCT USED FOR UNKNOWN INDICATION
     Dosage: UNK UNK, QD
     Route: 048
     Dates: start: 20071001, end: 20091201
  2. LEVOTHYROXINE SODIUM [Concomitant]
     Dosage: 25 MCG/24HR, UNK
     Route: 048
  3. SYNTHROID [Concomitant]
     Dosage: UNK
     Dates: start: 20020101

REACTIONS (4)
  - ABDOMINAL PAIN UPPER [None]
  - CHOLECYSTITIS CHRONIC [None]
  - BILIARY COLIC [None]
  - CHOLESTEROSIS [None]
